FAERS Safety Report 9738981 (Version 2)
Quarter: 2013Q4

REPORT INFORMATION
  Report Type: Report from Study
  Country: JP (occurrence: JP)
  Receive Date: 20131209
  Receipt Date: 20131209
  Transmission Date: 20140711
  Serious: Yes (Other)
  Sender: FDA-Public Use
  Company Number: PHHY2013JP012790

PATIENT
  Age: 36 Year
  Sex: Female

DRUGS (44)
  1. LEPONEX / CLOZARIL [Suspect]
     Indication: SCHIZOPHRENIA, PARANOID TYPE
     Dosage: 12.5 MG, DAILY
     Route: 048
     Dates: start: 20120816, end: 20120816
  2. LEPONEX / CLOZARIL [Suspect]
     Dosage: 25 MG, DAILY
     Route: 048
     Dates: start: 20120817, end: 20120819
  3. LEPONEX / CLOZARIL [Suspect]
     Dosage: 50 MG, DAILY
     Route: 048
     Dates: start: 20120820, end: 20120822
  4. LEPONEX / CLOZARIL [Suspect]
     Dosage: 75 MG, DAILY
     Route: 048
     Dates: start: 20120823, end: 20120824
  5. LEPONEX / CLOZARIL [Suspect]
     Dosage: 100 MG, DAILY
     Route: 048
     Dates: start: 20120825, end: 20120826
  6. LEPONEX / CLOZARIL [Suspect]
     Dosage: 125 MG, DAILY
     Route: 048
     Dates: start: 20120827, end: 20120829
  7. LEPONEX / CLOZARIL [Suspect]
     Dosage: 150 MG, DAILY
     Route: 048
     Dates: start: 20120830, end: 20120901
  8. LEPONEX / CLOZARIL [Suspect]
     Dosage: 175 MG, DAILY
     Route: 048
     Dates: start: 20120902, end: 20120904
  9. LEPONEX / CLOZARIL [Suspect]
     Dosage: 200 MG, DAILY
     Route: 048
     Dates: start: 20120905, end: 20120907
  10. LEPONEX / CLOZARIL [Suspect]
     Dosage: 250 MG, DAILY
     Route: 048
     Dates: start: 20120908, end: 20120910
  11. LEPONEX / CLOZARIL [Suspect]
     Dosage: 300 MG, DAILY
     Route: 048
     Dates: start: 20120911, end: 20120912
  12. LEPONEX / CLOZARIL [Suspect]
     Dosage: 325 MG, DAILY
     Route: 048
     Dates: start: 20120913, end: 20120915
  13. LEPONEX / CLOZARIL [Suspect]
     Dosage: 350 MG, DAILY
     Route: 048
     Dates: start: 20120916, end: 20120919
  14. LEPONEX / CLOZARIL [Suspect]
     Dosage: 375 MG, DAILY
     Route: 048
     Dates: start: 20120920, end: 20120923
  15. LEPONEX / CLOZARIL [Suspect]
     Dosage: 400 MG, DAILY
     Route: 048
     Dates: start: 20120924, end: 20120926
  16. LEPONEX / CLOZARIL [Suspect]
     Dosage: 450 MG, DAILY
     Route: 048
     Dates: start: 20120927, end: 20121022
  17. LEPONEX / CLOZARIL [Suspect]
     Dosage: 300 MG, DAILY
     Route: 048
     Dates: start: 20121023, end: 20121028
  18. LEPONEX / CLOZARIL [Suspect]
     Dosage: 250 MG, DAILY
     Route: 048
     Dates: start: 20121025, end: 20121028
  19. LEPONEX / CLOZARIL [Suspect]
     Dosage: 150 MG, DAILY
     Route: 048
     Dates: start: 20121029, end: 20121031
  20. LEPONEX / CLOZARIL [Suspect]
     Dosage: 125 MG, DAILY
     Route: 048
     Dates: start: 20121101
  21. SERENACE [Concomitant]
     Dosage: 24 MG, UNK
     Route: 048
     Dates: start: 20120816
  22. SERENACE [Concomitant]
     Dosage: 18 MG, UNK
     Route: 048
  23. SERENACE [Concomitant]
     Dosage: 09 MG, UNK
     Route: 048
  24. SERENACE [Concomitant]
     Dosage: 03 MG, UNK
     Route: 048
  25. SERENACE [Concomitant]
     Dosage: 1.5 MG, UNK
     Route: 048
     Dates: end: 20120915
  26. CEFZON [Concomitant]
     Dosage: 300 MG, UNK
     Route: 048
     Dates: start: 20120816, end: 20120817
  27. AKINETON [Concomitant]
     Indication: PROPHYLAXIS
     Dosage: 2 MG, UNK
     Route: 048
     Dates: start: 20120816, end: 20121010
  28. EBRANTIL [Concomitant]
     Indication: URINARY RETENTION
     Dosage: 60 MG, UNK
     Route: 048
     Dates: start: 20120816
  29. EBRANTIL [Concomitant]
     Dosage: 45 MG, UNK
     Route: 048
  30. EBRANTIL [Concomitant]
     Dosage: 30 MG, UNK
     Route: 048
     Dates: end: 20121114
  31. BENZALIN [Concomitant]
     Indication: SCHIZOPHRENIA, PARANOID TYPE
     Dosage: 20 MG, UNK
     Route: 048
     Dates: start: 20120816
  32. BENZALIN [Concomitant]
     Dosage: 10 MG, UNK
     Route: 048
     Dates: end: 20121031
  33. LAXOBERON [Concomitant]
     Dosage: 5 MG, UNK
     Route: 048
     Dates: start: 20120816
  34. LIMAS [Concomitant]
     Indication: SCHIZOPHRENIA, PARANOID TYPE
     Dosage: 800 MG, UNK
     Route: 048
     Dates: start: 20120816
  35. RIVOTRIL [Concomitant]
     Indication: SCHIZOPHRENIA, PARANOID TYPE
     Dosage: 1 MG, UNK
     Route: 048
     Dates: start: 20120816
  36. RIVOTRIL [Concomitant]
     Dosage: 2 MG, UNK
     Route: 048
  37. RIVOTRIL [Concomitant]
     Dosage: 1.5 MG, UNK
     Route: 048
     Dates: end: 20121115
  38. LENDORMIN [Concomitant]
     Indication: SCHIZOPHRENIA, PARANOID TYPE
     Dosage: 05 MG, UNK
     Route: 048
     Dates: start: 20120816
  39. MAGNESIUM OXIDE [Concomitant]
     Indication: CONSTIPATION
     Dosage: 1 G, UNK
     Route: 048
     Dates: start: 20120816
  40. MAGNESIUM OXIDE [Concomitant]
     Dosage: 2 G, UNK
     Route: 048
  41. DEPAKENE-R [Concomitant]
     Indication: SCHIZOPHRENIA, PARANOID TYPE
     Dosage: 600 MG, UNK
     Route: 048
     Dates: start: 20120924
  42. DEPAKENE-R [Concomitant]
     Dosage: 1000 MG, UNK
     Route: 048
  43. DEPAKENE-R [Concomitant]
     Dosage: 600 MG, UNK
     Route: 048
     Dates: end: 20121101
  44. GASCON [Concomitant]
     Indication: ABDOMINAL DISTENSION
     Dosage: 80 MG, UNK
     Route: 048
     Dates: start: 20121030

REACTIONS (9)
  - Myoclonus [Recovering/Resolving]
  - Intestinal obstruction [Recovered/Resolved]
  - Constipation [Not Recovered/Not Resolved]
  - White blood cell count increased [Recovered/Resolved]
  - Salivary hypersecretion [Recovering/Resolving]
  - Bradykinesia [Recovering/Resolving]
  - Abdominal distension [Not Recovered/Not Resolved]
  - Body temperature decreased [Recovered/Resolved]
  - Blood pressure decreased [Unknown]
